FAERS Safety Report 20623969 (Version 2)
Quarter: 2022Q1

REPORT INFORMATION
  Report Type: Report from Study
  Country: IN (occurrence: IN)
  Receive Date: 20220322
  Receipt Date: 20220329
  Transmission Date: 20220424
  Serious: Yes (Hospitalization, Other)
  Sender: FDA-Public Use
  Company Number: IN-BoehringerIngelheim-2022-BI-159853

PATIENT
  Age: 47 Year
  Sex: Male
  Weight: 69 kg

DRUGS (11)
  1. NINTEDANIB [Suspect]
     Active Substance: NINTEDANIB
     Indication: Systemic sclerosis pulmonary
     Route: 048
     Dates: start: 20181211
  2. T. Thyronorm [Concomitant]
     Indication: Hypothyroidism
     Route: 048
     Dates: start: 20181115
  3. Tab. Telma CT [Concomitant]
     Indication: Hypertension
     Dosage: DOSE- 80/6.25 MG
     Route: 048
     Dates: start: 20201006
  4. T. MMF S [Concomitant]
     Indication: Immunosuppression
     Route: 048
     Dates: start: 20210201
  5. T. HCQ [Concomitant]
     Indication: Autoimmune disorder
     Dosage: 1-0-1
     Route: 048
     Dates: start: 20210104
  6. T. Cilacar [Concomitant]
     Indication: Hypertension
     Route: 048
     Dates: start: 20181113
  7. T. OSTEOFIT C [Concomitant]
     Indication: Nutritional supplementation
     Route: 048
     Dates: start: 20210315
  8. T. TENTROL [Concomitant]
     Indication: Intermittent claudication
     Route: 048
     Dates: start: 20210201
  9. INJ Stemetil [Concomitant]
     Indication: Mania
     Dosage: INJ/1 AMP
     Route: 030
     Dates: start: 20220315, end: 20220315
  10. CILNIDIPINE [Concomitant]
     Active Substance: CILNIDIPINE
     Indication: Angina pectoris
     Dosage: 1-0-0
     Route: 048
     Dates: start: 20220315
  11. INJ Dexa [Concomitant]
     Indication: Autoimmune disorder
     Dosage: 1-0-1
     Route: 030
     Dates: start: 20220315, end: 20220315

REACTIONS (1)
  - Labyrinthitis [Recovered/Resolved]

NARRATIVE: CASE EVENT DATE: 20220312
